FAERS Safety Report 17883082 (Version 1)
Quarter: 2020Q2

REPORT INFORMATION
  Report Type: Report from Study
  Country: None (occurrence: ES)
  Receive Date: 20200611
  Receipt Date: 20200611
  Transmission Date: 20200714
  Serious: Yes (Death, Other)
  Sender: FDA-Public Use
  Company Number: ES-ABBVIE-20K-144-3436733-00

PATIENT
  Age: 72 Year
  Sex: Male
  Weight: 51 kg

DRUGS (1)
  1. DUODOPA [Suspect]
     Active Substance: CARBIDOPA\LEVODOPA
     Indication: PARKINSON^S DISEASE
     Dosage: CONTINUOUS DOSE 2.1
     Route: 050
     Dates: start: 20080331, end: 20200508

REACTIONS (6)
  - Gastric perforation [Fatal]
  - Device dislocation [Fatal]
  - General physical health deterioration [Fatal]
  - Intestinal perforation [Fatal]
  - Medical device site injury [Fatal]
  - Device placement issue [Unknown]

NARRATIVE: CASE EVENT DATE: 2020
